FAERS Safety Report 13995259 (Version 3)
Quarter: 2021Q1

REPORT INFORMATION
  Report Type: Report from Study
  Country: US (occurrence: US)
  Receive Date: 20170921
  Receipt Date: 20210209
  Transmission Date: 20210419
  Serious: Yes (Hospitalization, Other)
  Sender: FDA-Public Use
  Company Number: US-ROCHE-1994555

PATIENT
  Age: 78 Year
  Sex: Male
  Weight: 74.91 kg

DRUGS (40)
  1. VENETOCLAX. [Suspect]
     Active Substance: VENETOCLAX
     Indication: DIFFUSE LARGE B-CELL LYMPHOMA
     Dosage: ON DAYS 3?12 IN CYCLE 1, AND DAYS 1?10 WITH ALL SUBSEQUENT CYCLES
     Route: 048
     Dates: start: 20170811, end: 20170818
  2. ETOPOSIDE. [Suspect]
     Active Substance: ETOPOSIDE
     Dosage: TIME: 07:01
     Route: 042
     Dates: start: 20170812
  3. ETOPOSIDE. [Suspect]
     Active Substance: ETOPOSIDE
     Dosage: TIME: 22:27
     Route: 042
     Dates: start: 20170812
  4. DOXORUBICIN HYDROCHLORIDE. [Suspect]
     Active Substance: DOXORUBICIN HYDROCHLORIDE
     Dosage: TIME: 19:08
     Route: 042
     Dates: start: 20170810
  5. VINCRISTINE SULFATE. [Suspect]
     Active Substance: VINCRISTINE SULFATE
     Dosage: TIME: 07:01
     Route: 042
     Dates: start: 20170812
  6. ETOPOSIDE. [Suspect]
     Active Substance: ETOPOSIDE
     Dosage: TIME: 22:05
     Route: 042
     Dates: start: 20170810
  7. ETOPOSIDE. [Suspect]
     Active Substance: ETOPOSIDE
     Dosage: TIME: 19:45
     Route: 042
     Dates: start: 20170813
  8. DOXORUBICIN HYDROCHLORIDE. [Suspect]
     Active Substance: DOXORUBICIN HYDROCHLORIDE
     Dosage: TIME: 22:05
     Route: 042
     Dates: start: 20170810
  9. PREDNISONE. [Suspect]
     Active Substance: PREDNISONE
     Indication: DIFFUSE LARGE B-CELL LYMPHOMA
     Dosage: GIVEN FOR A TOTAL OF 6 CYCLES
     Route: 048
  10. ETOPOSIDE. [Suspect]
     Active Substance: ETOPOSIDE
     Dosage: TIME: 07:20
     Route: 042
     Dates: start: 20170811
  11. ETOPOSIDE. [Suspect]
     Active Substance: ETOPOSIDE
     Dosage: TIME: 20:00
     Route: 042
     Dates: start: 20170812
  12. VINCRISTINE SULFATE. [Suspect]
     Active Substance: VINCRISTINE SULFATE
     Dosage: TIME: 18:50
     Route: 042
     Dates: start: 20170811
  13. VINCRISTINE SULFATE. [Suspect]
     Active Substance: VINCRISTINE SULFATE
     Dosage: TIME: 22:04
     Route: 042
     Dates: start: 20170811
  14. VINCRISTINE SULFATE. [Suspect]
     Active Substance: VINCRISTINE SULFATE
     Dosage: TIME: 07:30
     Route: 042
     Dates: start: 20170813
  15. VINCRISTINE SULFATE. [Suspect]
     Active Substance: VINCRISTINE SULFATE
     Dosage: TIME: 19:45
     Route: 042
     Dates: start: 20170813
  16. ETOPOSIDE. [Suspect]
     Active Substance: ETOPOSIDE
     Dosage: TIME: 07:20
     Route: 042
     Dates: start: 20170810
  17. DOXORUBICIN HYDROCHLORIDE. [Suspect]
     Active Substance: DOXORUBICIN HYDROCHLORIDE
     Dosage: TIME: 22:27
     Route: 042
     Dates: start: 20170812
  18. DOXORUBICIN HYDROCHLORIDE. [Suspect]
     Active Substance: DOXORUBICIN HYDROCHLORIDE
     Dosage: TIME: 07:30
     Route: 042
     Dates: start: 20170813
  19. VINCRISTINE SULFATE. [Suspect]
     Active Substance: VINCRISTINE SULFATE
     Dosage: TIME: 07:20
     Route: 042
     Dates: start: 20170810
  20. VINCRISTINE SULFATE. [Suspect]
     Active Substance: VINCRISTINE SULFATE
     Dosage: TIME: 19:08
     Route: 042
     Dates: start: 20170810
  21. VINCRISTINE SULFATE. [Suspect]
     Active Substance: VINCRISTINE SULFATE
     Dosage: TIME: 22:27
     Route: 042
     Dates: start: 20170812
  22. CYCLOPHOSPHAMIDE. [Suspect]
     Active Substance: CYCLOPHOSPHAMIDE
     Indication: DIFFUSE LARGE B-CELL LYMPHOMA
     Dosage: GIVEN FOR A TOTAL OF 6 CYCLES
     Route: 042
     Dates: start: 20170813
  23. ETOPOSIDE. [Suspect]
     Active Substance: ETOPOSIDE
     Indication: DIFFUSE LARGE B-CELL LYMPHOMA
     Dosage: GIVEN FOR A TOTAL OF 6 CYCLES?TIME: 21:30
     Route: 042
     Dates: start: 20170809
  24. DOXORUBICIN HYDROCHLORIDE. [Suspect]
     Active Substance: DOXORUBICIN HYDROCHLORIDE
     Dosage: TIME: 07:20
     Route: 042
     Dates: start: 20170811
  25. DOXORUBICIN HYDROCHLORIDE. [Suspect]
     Active Substance: DOXORUBICIN HYDROCHLORIDE
     Dosage: TIME: 18:50
     Route: 042
     Dates: start: 20170811
  26. DOXORUBICIN HYDROCHLORIDE. [Suspect]
     Active Substance: DOXORUBICIN HYDROCHLORIDE
     Dosage: TIME: 22:04
     Route: 042
     Dates: start: 20170811
  27. RITUXIMAB. [Suspect]
     Active Substance: RITUXIMAB
     Indication: DIFFUSE LARGE B-CELL LYMPHOMA
     Dosage: ON DAY 1 OF EACH CYCLE; THE FIRST RITUXIMAB INFUSION SHOULD BE STARTED AT 50 MG/HR, AND INCREASED IN
     Route: 042
     Dates: start: 20170809
  28. ETOPOSIDE. [Suspect]
     Active Substance: ETOPOSIDE
     Dosage: TIME: 22:04
     Route: 042
     Dates: start: 20170811
  29. DOXORUBICIN HYDROCHLORIDE. [Suspect]
     Active Substance: DOXORUBICIN HYDROCHLORIDE
     Dosage: TIME: 07:20
     Route: 042
     Dates: start: 20170810
  30. VINCRISTINE SULFATE. [Suspect]
     Active Substance: VINCRISTINE SULFATE
     Indication: DIFFUSE LARGE B-CELL LYMPHOMA
     Dosage: GIVEN FOR A TOTAL OF 6 CYCLES?TIME: 21:30
     Route: 042
     Dates: start: 20170809
  31. ETOPOSIDE. [Suspect]
     Active Substance: ETOPOSIDE
     Dosage: TIME: 19:08
     Route: 042
     Dates: start: 20170810
  32. ETOPOSIDE. [Suspect]
     Active Substance: ETOPOSIDE
     Dosage: TIME: 18:50
     Route: 042
     Dates: start: 20170811
  33. DOXORUBICIN HYDROCHLORIDE. [Suspect]
     Active Substance: DOXORUBICIN HYDROCHLORIDE
     Dosage: TIME: 20:00
     Route: 042
     Dates: start: 20170812
  34. VINCRISTINE SULFATE. [Suspect]
     Active Substance: VINCRISTINE SULFATE
     Dosage: TIME: 22:05
     Route: 042
     Dates: start: 20170810
  35. VINCRISTINE SULFATE. [Suspect]
     Active Substance: VINCRISTINE SULFATE
     Dosage: TIME: 07:20
     Route: 042
     Dates: start: 20170811
  36. ETOPOSIDE. [Suspect]
     Active Substance: ETOPOSIDE
     Dosage: TIME: 07:30
     Route: 042
     Dates: start: 20170813
  37. DOXORUBICIN HYDROCHLORIDE. [Suspect]
     Active Substance: DOXORUBICIN HYDROCHLORIDE
     Indication: DIFFUSE LARGE B-CELL LYMPHOMA
     Dosage: GIVEN FOR A TOTAL OF 6 CYCLES?TIME: 21:30
     Route: 042
     Dates: start: 20170809
  38. DOXORUBICIN HYDROCHLORIDE. [Suspect]
     Active Substance: DOXORUBICIN HYDROCHLORIDE
     Dosage: TIME: 07:01
     Route: 042
     Dates: start: 20170812
  39. DOXORUBICIN HYDROCHLORIDE. [Suspect]
     Active Substance: DOXORUBICIN HYDROCHLORIDE
     Dosage: TIME: 19:45
     Route: 042
     Dates: start: 20170813
  40. VINCRISTINE SULFATE. [Suspect]
     Active Substance: VINCRISTINE SULFATE
     Dosage: TIME: 20:00
     Route: 042
     Dates: start: 20170812

REACTIONS (5)
  - Hypokalaemia [Unknown]
  - Platelet count decreased [Unknown]
  - Ejection fraction decreased [Unknown]
  - Neutropenia [Recovered/Resolved]
  - Febrile neutropenia [Unknown]

NARRATIVE: CASE EVENT DATE: 20170816
